FAERS Safety Report 8570494-9 (Version None)
Quarter: 2012Q3

REPORT INFORMATION
  Report Type: 
  Country: None (occurrence: None)
  Receive Date: 20120803
  Receipt Date: 20120724
  Transmission Date: 20120928
  Serious: No
  Sender: FDA-Public Use
  Company Number: US-ASTRAZENECA-2011SE65174

PATIENT
  Age: 49 Year
  Sex: Female

DRUGS (5)
  1. SEROQUEL XR [Suspect]
     Indication: DEPRESSION
     Route: 048
  2. SEROQUEL XR [Suspect]
     Route: 048
  3. NEXIUM [Suspect]
     Route: 048
  4. SEROQUEL XR [Suspect]
     Route: 048
  5. SEROQUEL XR [Suspect]
     Route: 048

REACTIONS (10)
  - DYSPEPSIA [None]
  - ADVERSE EVENT [None]
  - STRESS [None]
  - MENTAL DISORDER [None]
  - INSOMNIA [None]
  - GASTRIC DISORDER [None]
  - RESTLESSNESS [None]
  - DRUG DOSE OMISSION [None]
  - GASTROOESOPHAGEAL REFLUX DISEASE [None]
  - TACHYPHRENIA [None]
